FAERS Safety Report 11312765 (Version 1)
Quarter: 2015Q3

REPORT INFORMATION
  Report Type: Spontaneous
  Country: US (occurrence: US)
  Receive Date: 20150727
  Receipt Date: 20150727
  Transmission Date: 20151125
  Serious: No
  Sender: FDA-Public Use
  Company Number: US-ABBVIE-15P-163-1343849-00

PATIENT
  Age: 37 Year
  Sex: Male
  Weight: 79.45 kg

DRUGS (1)
  1. SYNTHROID [Suspect]
     Active Substance: LEVOTHYROXINE SODIUM
     Indication: HYPOTHYROIDISM
     Route: 048
     Dates: start: 201305

REACTIONS (7)
  - Dizziness [Recovering/Resolving]
  - Product lot number issue [Unknown]
  - Asthenia [Not Recovered/Not Resolved]
  - Palpitations [Recovering/Resolving]
  - Thyroxine free abnormal [Unknown]
  - Irritability [Recovering/Resolving]
  - Insomnia [Recovering/Resolving]

NARRATIVE: CASE EVENT DATE: 20150119
